FAERS Safety Report 7630576-2 (Version None)
Quarter: 2011Q3

REPORT INFORMATION
  Report Type: 
  Country: None (occurrence: None)
  Receive Date: 20110722
  Receipt Date: 20110718
  Transmission Date: 20111222
  Serious: Yes (Death, Life-Threatening, Hospitalization, Other)
  Sender: FDA-Public Use
  Company Number: BR-ELI_LILLY_AND_COMPANY-BR201107005189

PATIENT
  Sex: Male
  Weight: 80 kg

DRUGS (1)
  1. XIGRIS [Suspect]
     Indication: SEPTIC SHOCK
     Dosage: 21 ML, OTHER (HOUR)
     Route: 042
     Dates: start: 20110703, end: 20110707

REACTIONS (3)
  - MULTI-ORGAN FAILURE [None]
  - SHOCK HAEMORRHAGIC [None]
  - INTRA-ABDOMINAL HAEMORRHAGE [None]
